FAERS Safety Report 24071892 (Version 1)
Quarter: 2024Q3

REPORT INFORMATION
  Report Type: Report from Study
  Country: TR (occurrence: TR)
  Receive Date: 20240710
  Receipt Date: 20240710
  Transmission Date: 20241017
  Serious: No
  Sender: ROCHE
  Company Number: TR-ROCHE-3577356

PATIENT
  Age: 37 Year
  Sex: Male
  Weight: 69.0 kg

DRUGS (16)
  1. ALECTINIB [Suspect]
     Active Substance: ALECTINIB
     Indication: Non-small cell lung cancer metastatic
     Route: 048
     Dates: start: 20210611
  2. ALECTINIB [Suspect]
     Active Substance: ALECTINIB
     Route: 048
     Dates: start: 20210324
  3. GERALGINE-K [Concomitant]
     Indication: Bone pain
     Dosage: 20 TABLET
     Dates: start: 20210310
  4. DEXAMETHASONE [Concomitant]
     Active Substance: DEXAMETHASONE
     Indication: Oedema
     Route: 048
     Dates: start: 20210317
  5. DELTACORTRIL [Concomitant]
     Active Substance: PREDNISOLONE
     Dosage: ANTI-INFLAMMATORY
     Route: 048
     Dates: start: 20210907, end: 20231029
  6. SULFASALAZINE [Concomitant]
     Active Substance: SULFASALAZINE
     Route: 048
     Dates: start: 20210907, end: 20231029
  7. D-COLEFOR [Concomitant]
     Indication: Vitamin D deficiency
     Dosage: 20 U
     Route: 048
     Dates: start: 20210907
  8. LANSOPRAZOLE [Concomitant]
     Active Substance: LANSOPRAZOLE
     Route: 048
     Dates: start: 20210317
  9. BEVACIZUMAB [Concomitant]
     Active Substance: BEVACIZUMAB
     Indication: Radiation necrosis
     Route: 042
     Dates: start: 20221103, end: 20221215
  10. BEVACIZUMAB [Concomitant]
     Active Substance: BEVACIZUMAB
     Route: 042
     Dates: start: 20230522, end: 20230605
  11. CIPRALEX [Concomitant]
     Active Substance: ESCITALOPRAM OXALATE
     Indication: Depression
     Route: 048
     Dates: start: 20221003
  12. BACTROBAN [Concomitant]
     Active Substance: MUPIROCIN CALCIUM
     Route: 008
     Dates: start: 20220517
  13. TANFLEX [Concomitant]
     Indication: Stomatitis
     Route: 048
     Dates: start: 20220614
  14. EPINEPHRINE\LIDOCAINE HYDROCHLORIDE [Concomitant]
     Active Substance: EPINEPHRINE\LIDOCAINE HYDROCHLORIDE
     Indication: Stomatitis
     Dosage: 2 AMPULE
     Route: 048
     Dates: start: 20220614
  15. PAROL [Concomitant]
     Active Substance: ACETAMINOPHEN
     Route: 048
     Dates: start: 20220913, end: 20220922
  16. LORLATINIB [Concomitant]
     Active Substance: LORLATINIB
     Dates: start: 20230109, end: 20231028

REACTIONS (1)
  - Epilepsy [Not Recovered/Not Resolved]

NARRATIVE: CASE EVENT DATE: 20220825
